FAERS Safety Report 5624393-2 (Version None)
Quarter: 2008Q1

REPORT INFORMATION
  Report Type: 
  Country: None (occurrence: None)
  Receive Date: 20080213
  Receipt Date: 20080131
  Transmission Date: 20080703
  Serious: Yes (Other)
  Sender: FDA-Public Use
  Company Number: US-JNJFOC-20071105069

PATIENT
  Sex: Female

DRUGS (6)
  1. INVEGA [Suspect]
     Indication: DRUG USE FOR UNKNOWN INDICATION
     Route: 048
  2. WELLBUTRIN [Concomitant]
     Indication: ANTIDEPRESSANT THERAPY
  3. PAXIL [Concomitant]
     Indication: ANTIDEPRESSANT THERAPY
  4. KLONOPIN [Concomitant]
     Indication: ANXIETY
  5. NEURONTIN [Concomitant]
     Indication: DRUG THERAPY
  6. LITHIUM CARBONATE [Concomitant]
     Indication: DRUG THERAPY

REACTIONS (2)
  - DYSPNOEA [None]
  - RASH ERYTHEMATOUS [None]
